FAERS Safety Report 7544118-3 (Version None)
Quarter: 2011Q2

REPORT INFORMATION
  Report Type: 
  Country: None (occurrence: None)
  Receive Date: 20110613
  Receipt Date: 20051220
  Transmission Date: 20111010
  Serious: Yes (Hospitalization, Other)
  Sender: FDA-Public Use
  Company Number: PHNU2005PL04255

PATIENT
  Sex: Male
  Weight: 90 kg

DRUGS (3)
  1. POLOCARD [Concomitant]
  2. LESCOL XL [Suspect]
     Dosage: 80 MG, QD
     Route: 048
     Dates: start: 20050609, end: 20050919
  3. SIMVASTATIN [Suspect]
     Dosage: 20 MG, QD

REACTIONS (2)
  - EPISTAXIS [None]
  - BLOOD PRESSURE INCREASED [None]
